FAERS Safety Report 4951550-0 (Version None)
Quarter: 2006Q1

REPORT INFORMATION
  Report Type: 
  Country: None (occurrence: None)
  Receive Date: 20060317
  Receipt Date: 20060308
  Transmission Date: 20060701
  Serious: Yes (Other)
  Sender: FDA-Public Use
  Company Number: 2006034495

PATIENT
  Sex: 0

DRUGS (2)
  1. METHYLPREDNISOLONE SODIUM SUCCINATE [Suspect]
     Indication: PAIN
     Dosage: EPIDURAL
     Route: 008
  2. BUPIVACAINE [Suspect]
     Indication: PAIN
     Dosage: EPIDURAL
     Route: 008

REACTIONS (1)
  - EPILEPSY [None]
